FAERS Safety Report 5518435-2 (Version None)
Quarter: 2007Q4

REPORT INFORMATION
  Report Type: 
  Country: None (occurrence: None)
  Receive Date: 20071115
  Receipt Date: 20071105
  Transmission Date: 20080405
  Serious: Yes (Other)
  Sender: FDA-Public Use
  Company Number: AT-JNJFOC-20071004528

PATIENT
  Age: 78 Year
  Sex: Female
  Weight: 104 kg

DRUGS (11)
  1. REMICADE [Suspect]
     Indication: RHEUMATOID ARTHRITIS
     Route: 042
  2. THYREX [Concomitant]
     Indication: HYPOTHYROIDISM
     Dosage: 0.1 MCG
     Route: 048
  3. CLOPIDOGREL [Concomitant]
     Indication: ACUTE CORONARY SYNDROME
     Route: 048
  4. ISMN [Concomitant]
     Indication: CORONARY ARTERY DISEASE
     Route: 048
  5. SIMAVASTATIN [Concomitant]
     Indication: DYSLIPIDAEMIA
     Route: 048
  6. BISOPROLOL FUMARATE [Concomitant]
     Indication: CORONARY ARTERY DISEASE
     Route: 048
  7. T-ASS [Concomitant]
     Indication: CORONARY ARTERY DISEASE
     Route: 048
  8. POTASSIUM CITRATE [Concomitant]
     Indication: PROPHYLAXIS
     Route: 048
  9. ALLOPURINOL [Concomitant]
     Indication: BLOOD URIC ACID INCREASED
     Route: 048
  10. LASIX [Concomitant]
     Indication: CORONARY ARTERY DISEASE
     Route: 048
  11. EPTIFIBATIDE [Concomitant]
     Indication: ACUTE CORONARY SYNDROME

REACTIONS (4)
  - BLOOD PRESSURE IMMEASURABLE [None]
  - CYANOSIS [None]
  - DYSPNOEA [None]
  - INFUSION RELATED REACTION [None]
